FAERS Safety Report 11879263 (Version 1)
Quarter: 2015Q4

REPORT INFORMATION
  Report Type: Spontaneous
  Country: US (occurrence: US)
  Receive Date: 20151230
  Receipt Date: 20151230
  Transmission Date: 20160305
  Serious: Yes (Other)
  Sender: FDA-Public Use
  Company Number: US-PFIZER INC-2015475453

PATIENT
  Age: 43 Year
  Sex: Male
  Weight: 73 kg

DRUGS (1)
  1. XANAX [Suspect]
     Active Substance: ALPRAZOLAM
     Indication: PANIC DISORDER
     Dosage: 4-6 MG, DAILY

REACTIONS (3)
  - Drug dependence [Unknown]
  - Tremor [Unknown]
  - Thinking abnormal [Unknown]
